FAERS Safety Report 9312537 (Version 1)
Quarter: 2013Q2

REPORT INFORMATION
  Report Type: Spontaneous
  Country: CN (occurrence: None)
  Receive Date: 20130520
  Receipt Date: 20130520
  Transmission Date: 20140414
  Serious: Yes (Other)
  Sender: FDA-Public Use
  Company Number: VAL_02521_2013

PATIENT
  Age: 37 Year
  Sex: Female

DRUGS (3)
  1. ROCALTROL [Suspect]
     Indication: RHEUMATOID ARTHRITIS
     Route: 048
     Dates: start: 201210
  2. METHYLPREDNISOLONE [Concomitant]
  3. CALCIUM [Concomitant]

REACTIONS (2)
  - No therapeutic response [None]
  - Product counterfeit [None]
